FAERS Safety Report 19361502 (Version 1)
Quarter: 2021Q2

REPORT INFORMATION
  Report Type: Other
  Country: RU (occurrence: RU)
  Receive Date: 20210603
  Receipt Date: 20210603
  Transmission Date: 20210717
  Serious: Yes (Hospitalization)
  Sender: FDA-Public Use
  Company Number: RU-ROCHE-2840373

PATIENT
  Age: 34 Year
  Sex: Male
  Weight: 90 kg

DRUGS (9)
  1. CHLOROPYRAMINE [Concomitant]
     Active Substance: CHLOROPYRAMINE
     Route: 042
     Dates: start: 20200310, end: 20200310
  2. OCRELIZUMAB. [Suspect]
     Active Substance: OCRELIZUMAB
     Indication: PROGRESSIVE RELAPSING MULTIPLE SCLEROSIS
     Route: 042
     Dates: start: 20200225, end: 20200225
  3. CHLOROPYRAMINE [Concomitant]
     Active Substance: CHLOROPYRAMINE
     Route: 042
     Dates: start: 20201015, end: 20201015
  4. METHYLPREDNISOLONE. [Concomitant]
     Active Substance: METHYLPREDNISOLONE
     Route: 042
     Dates: start: 20201015, end: 20201015
  5. CHLOROPYRAMINE [Concomitant]
     Active Substance: CHLOROPYRAMINE
     Route: 042
     Dates: start: 20200225, end: 20200225
  6. METHYLPREDNISOLONE. [Concomitant]
     Active Substance: METHYLPREDNISOLONE
     Route: 042
     Dates: start: 20200225, end: 20200225
  7. OCRELIZUMAB. [Suspect]
     Active Substance: OCRELIZUMAB
     Route: 042
     Dates: start: 20201015, end: 20201015
  8. METHYLPREDNISOLONE. [Concomitant]
     Active Substance: METHYLPREDNISOLONE
     Route: 042
     Dates: start: 20200310, end: 20200310
  9. OCRELIZUMAB. [Suspect]
     Active Substance: OCRELIZUMAB
     Indication: PRIMARY PROGRESSIVE MULTIPLE SCLEROSIS
     Route: 042
     Dates: start: 20200310, end: 20200310

REACTIONS (5)
  - Multiple sclerosis [Recovered/Resolved]
  - Neurogenic bladder [Recovered/Resolved]
  - Urinary retention [Recovered/Resolved]
  - Acute kidney injury [Recovered/Resolved with Sequelae]
  - Cystitis [Recovered/Resolved]

NARRATIVE: CASE EVENT DATE: 20201212
